FAERS Safety Report 9379812 (Version 4)
Quarter: 2014Q2

REPORT INFORMATION
  Report Type: Spontaneous
  Country: US (occurrence: US)
  Receive Date: 20130702
  Receipt Date: 20140613
  Transmission Date: 20141212
  Serious: No
  Sender: FDA-Public Use
  Company Number: US-009507513-1306USA013140

PATIENT
  Sex: Male
  Weight: 68.27 kg

DRUGS (1)
  1. PROPECIA [Suspect]
     Indication: ALOPECIA
     Dosage: 1 MG, UNK
     Route: 048
     Dates: start: 200811, end: 201111

REACTIONS (8)
  - Orgasm abnormal [Unknown]
  - Cognitive disorder [Unknown]
  - Anxiety [Unknown]
  - Sexual dysfunction [Unknown]
  - Erectile dysfunction [Recovering/Resolving]
  - Libido decreased [Unknown]
  - Ejaculation disorder [Unknown]
  - Depression [Unknown]
